FAERS Safety Report 8906032 (Version 1)
Quarter: 2012Q4

REPORT INFORMATION
  Report Type: 
  Country: NO (occurrence: NO)
  Receive Date: 20121109
  Receipt Date: 20121109
  Transmission Date: 20130627
  Serious: Yes (Hospitalization)
  Sender: FDA-Public Use
  Company Number: NO-GLAXOSMITHKLINE-B0842994A

PATIENT
  Age: 27 Year
  Sex: Female

DRUGS (4)
  1. TROBALT [Suspect]
     Indication: EPILEPSY
     Dosage: 100MG Three times per day
     Route: 048
     Dates: start: 20120824, end: 20121007
  2. TETRALYSAL [Concomitant]
     Indication: ACNE
     Dosage: 100MG Per day
     Route: 048
     Dates: start: 20120920, end: 20120928
  3. KEPPRA [Concomitant]
     Indication: EPILEPSY
     Dosage: 1500MG Twice per day
     Route: 048
  4. CIPRALEX [Concomitant]
     Dosage: 30MG Per day
     Route: 048

REACTIONS (1)
  - Hepatitis [Recovering/Resolving]
